FAERS Safety Report 20332368 (Version 1)
Quarter: 2022Q1

REPORT INFORMATION
  Report Type: Spontaneous
  Country: DE (occurrence: DE)
  Receive Date: 20220113
  Receipt Date: 20220113
  Transmission Date: 20220423
  Serious: Yes (Life-Threatening, Hospitalization, Other)
  Sender: FDA-Public Use
  Company Number: DE-PEI-202100287130

PATIENT
  Age: 63 Year
  Sex: Female

DRUGS (1)
  1. ALBUMIN HUMAN [Suspect]
     Active Substance: ALBUMIN HUMAN
     Indication: Surgery
     Dosage: 50 MILLILITER, BID
     Route: 065
     Dates: start: 20211127

REACTIONS (7)
  - Anaphylactic reaction [Recovered/Resolved]
  - Dyspnoea [Recovered/Resolved]
  - Erythema [Recovered/Resolved]
  - Heart rate increased [Recovered/Resolved]
  - Blood pressure decreased [Recovered/Resolved]
  - Oedema mucosal [Recovered/Resolved]
  - Chest discomfort [Recovered/Resolved]

NARRATIVE: CASE EVENT DATE: 20211127
